FAERS Safety Report 24711690 (Version 1)
Quarter: 2024Q4

REPORT INFORMATION
  Report Type: Report from Study
  Country: US (occurrence: US)
  Receive Date: 20241209
  Receipt Date: 20241209
  Transmission Date: 20250114
  Serious: Yes (Death)
  Sender: OTSUKA
  Company Number: US-OTSUKA-2024_032923

PATIENT
  Age: 87 Year
  Sex: Female

DRUGS (1)
  1. TOLVAPTAN [Suspect]
     Active Substance: TOLVAPTAN
     Indication: Inappropriate antidiuretic hormone secretion
     Dosage: 15 MG
     Route: 065

REACTIONS (2)
  - Death [Fatal]
  - Incorrect product administration duration [Unknown]

NARRATIVE: CASE EVENT DATE: 20240927
